FAERS Safety Report 9027948 (Version 1)
Quarter: 2013Q1

REPORT INFORMATION
  Report Type: Spontaneous
  Country: US (occurrence: None)
  Receive Date: 20130114
  Receipt Date: 20130114
  Transmission Date: 20140127
  Serious: Yes (Other)
  Sender: FDA-Public Use
  Company Number: None

PATIENT
  Sex: Female

DRUGS (1)
  1. CYCLOSPORINE [Suspect]
     Dosage: 150 MG TWICE A DAY BY MOUTH
     Route: 048
     Dates: start: 201201, end: 201301

REACTIONS (3)
  - Blood creatinine increased [None]
  - Renal disorder [None]
  - Cerebrovascular accident [None]
